FAERS Safety Report 25164413 (Version 6)
Quarter: 2025Q3

REPORT INFORMATION
  Report Type: Spontaneous
  Country: US (occurrence: US)
  Receive Date: 20250405
  Receipt Date: 20250917
  Transmission Date: 20251020
  Serious: No
  Sender: SANOFI AVENTIS
  Company Number: US-SA-2025SA096950

PATIENT
  Age: 63 Year
  Sex: Female

DRUGS (1)
  1. DUPIXENT [Suspect]
     Active Substance: DUPILUMAB
     Indication: Chronic obstructive pulmonary disease
     Dosage: 300 MG, QOW
     Route: 058
     Dates: start: 20250320

REACTIONS (15)
  - Cough [Not Recovered/Not Resolved]
  - Dyspnoea [Not Recovered/Not Resolved]
  - Lacrimation increased [Unknown]
  - Pain [Unknown]
  - Paraesthesia [Unknown]
  - Neck pain [Recovering/Resolving]
  - Myalgia [Unknown]
  - Headache [Unknown]
  - Eye irritation [Unknown]
  - Arthralgia [Unknown]
  - Chronic obstructive pulmonary disease [Unknown]
  - Weight increased [Unknown]
  - Back pain [Unknown]
  - Toothache [Unknown]
  - Eye pruritus [Unknown]

NARRATIVE: CASE EVENT DATE: 20250101
